FAERS Safety Report 8525145 (Version 2)
Quarter: 2012Q4

REPORT INFORMATION
  Report Type: 
  Country: US (occurrence: US)
  Receive Date: 20120423
  Receipt Date: 20121109
  Transmission Date: 20130627
  Serious: Yes (Hospitalization)
  Sender: FDA-Public Use
  Company Number: US-SANOFI-AVENTIS-2012SA024849

PATIENT
  Age: 81 Year
  Sex: Male
  Weight: 82.1 kg

DRUGS (22)
  1. PLAVIX [Suspect]
     Indication: ANTIPLATELET THERAPY
     Route: 048
     Dates: start: 20110926
  2. LOVENOX [Suspect]
     Indication: THROMBOSIS PROPHYLAXIS
     Route: 058
     Dates: start: 20110926
  3. XARELTO [Suspect]
     Indication: THROMBOSIS PROPHYLAXIS
     Route: 048
     Dates: start: 20110928, end: 20110929
  4. ASPIRIN [Suspect]
     Indication: ANTIPLATELET THERAPY
     Route: 048
     Dates: start: 20110926
  5. NORVASC /DEN/ [Concomitant]
  6. COREG [Concomitant]
  7. FORTAZ [Concomitant]
  8. PEPCID [Concomitant]
  9. FERROUS GLUCONATE [Concomitant]
  10. PROSCAR [Concomitant]
  11. FLAXSEED OIL [Concomitant]
  12. NOVOLOG [Concomitant]
  13. LANTUS [Concomitant]
  14. LISINOPRIL [Concomitant]
  15. VITAMINS NOS [Concomitant]
  16. FISH OIL [Concomitant]
  17. MIRALAX [Concomitant]
  18. ZOCOR [Concomitant]
  19. VITAMIN B COMPLEX [Concomitant]
  20. APAP [Concomitant]
  21. ZOFRAN [Concomitant]
  22. NORMAL SALINE [Concomitant]

REACTIONS (2)
  - Deep vein thrombosis [Recovered/Resolved]
  - Oedema peripheral [Recovered/Resolved]
